FAERS Safety Report 22189677 (Version 1)
Quarter: 2023Q2

REPORT INFORMATION
  Report Type: Spontaneous
  Country: CA (occurrence: CA)
  Receive Date: 20230410
  Receipt Date: 20230410
  Transmission Date: 20230722
  Serious: Yes (Other)
  Sender: FDA-Public Use
  Company Number: CA-CELLTRION INC.-2023CA004518

PATIENT

DRUGS (6)
  1. INFLECTRA [Suspect]
     Active Substance: INFLIXIMAB-DYYB
     Indication: Colitis ulcerative
     Dosage: UNK
     Route: 042
     Dates: start: 20221206
  2. INFLECTRA [Suspect]
     Active Substance: INFLIXIMAB-DYYB
     Dosage: 600 MG (SUPPOSED TO RECEIVE 5 MG/KG), W0, W2, W6 AND Q8 WEEKS
     Route: 042
     Dates: start: 20230209
  3. ESTRADIOL [Concomitant]
     Active Substance: ESTRADIOL
     Dosage: 3 MG, 1X/DAY, ONCE DAILY
  4. PROGESTERONE [Concomitant]
     Active Substance: PROGESTERONE
     Dosage: 100 MG, 1X/DAY, ONCE DAILY
  5. SPIRONOLACTONE [Concomitant]
     Active Substance: SPIRONOLACTONE
     Dosage: 100 MG, 1X/DAY, ONCE DAILY
  6. SOLU-MEDROL [Concomitant]
     Active Substance: METHYLPREDNISOLONE SODIUM SUCCINATE
     Dosage: 1 DF

REACTIONS (5)
  - Rectal haemorrhage [Not Recovered/Not Resolved]
  - Off label use [Unknown]
  - Intentional product use issue [Unknown]
  - Inappropriate schedule of product administration [Unknown]
  - Incorrect dose administered [Unknown]

NARRATIVE: CASE EVENT DATE: 20230209
